FAERS Safety Report 15310176 (Version 4)
Quarter: 2020Q4

REPORT INFORMATION
  Report Type: Spontaneous
  Country: US (occurrence: US)
  Receive Date: 20180823
  Receipt Date: 20201110
  Transmission Date: 20210113
  Serious: No
  Sender: FDA-Public Use
  Company Number: US-PFIZER INC-2018340366

PATIENT
  Age: 53 Year
  Sex: Female
  Weight: 74 kg

DRUGS (1)
  1. GABAPENTIN. [Suspect]
     Active Substance: GABAPENTIN
     Dosage: UNK

REACTIONS (6)
  - Intentional product misuse [Unknown]
  - Dizziness [Unknown]
  - Drug ineffective [Unknown]
  - Migraine [Unknown]
  - Feeling abnormal [Unknown]
  - Drug hypersensitivity [Unknown]
